FAERS Safety Report 5822343-7 (Version None)
Quarter: 2008Q3

REPORT INFORMATION
  Report Type: 
  Country: None (occurrence: None)
  Receive Date: 20080723
  Receipt Date: 20080723
  Transmission Date: 20090109
  Serious: Yes (Disabling)
  Sender: FDA-Public Use
  Company Number: None

PATIENT
  Sex: Male
  Weight: 94 kg

DRUGS (12)
  1. LOVENOX [Suspect]
     Indication: ANTICOAGULANT THERAPY
     Dosage: 80MG BID SQ
     Route: 058
     Dates: start: 20080714, end: 20080717
  2. APAP TAB [Concomitant]
  3. PROVENTIL [Concomitant]
  4. NEXIUM [Concomitant]
  5. ATIVAN [Concomitant]
  6. LOPRESSOR [Concomitant]
  7. CELLCEPT [Concomitant]
  8. ZOCOR [Concomitant]
  9. PROGRAF [Concomitant]
  10. FLOMAX [Concomitant]
  11. ARANESP [Concomitant]
  12. PLAVIX [Concomitant]

REACTIONS (2)
  - RETROPERITONEAL HAEMORRHAGE [None]
  - WEIGHT INCREASED [None]
